FAERS Safety Report 10184897 (Version 2)
Quarter: 2014Q2

REPORT INFORMATION
  Report Type: Spontaneous
  Country: US (occurrence: None)
  Receive Date: 20140519
  Receipt Date: 20140609
  Transmission Date: 20141212
  Serious: Yes (Death, Hospitalization)
  Sender: FDA-Public Use
  Company Number: SYM-2014-20906

PATIENT
  Age: 83 Year
  Sex: Female

DRUGS (1)
  1. WELLBUTRIN [Suspect]
     Indication: DEPRESSION
     Route: 048
     Dates: start: 200207, end: 20030214

REACTIONS (4)
  - Convulsion [None]
  - Brain injury [None]
  - Gait disturbance [None]
  - Brain death [None]
